FAERS Safety Report 4435074-5 (Version None)
Quarter: 2004Q3

REPORT INFORMATION
  Report Type: 
  Country: None (occurrence: None)
  Receive Date: 20040826
  Receipt Date: 20040826
  Transmission Date: 20050211
  Serious: Yes (Hospitalization)
  Sender: FDA-Public Use
  Company Number: None

PATIENT
  Age: 74 Year
  Sex: Male
  Weight: 102.5 kg

DRUGS (14)
  1. DIGOXIN [Suspect]
     Indication: CARDIAC FAILURE CONGESTIVE
     Dosage: 0.125 MG  DAILY  ORAL
     Route: 048
     Dates: start: 20040521, end: 20040529
  2. CLARITHROMYCIN [Suspect]
     Indication: GASTROOESOPHAGEAL REFLUX DISEASE
     Dosage: 500MG  BID  ORAL
     Route: 048
     Dates: start: 20040521, end: 20040529
  3. CLARITHROMYCIN [Suspect]
     Indication: HELICOBACTER INFECTION
     Dosage: 500MG  BID  ORAL
     Route: 048
     Dates: start: 20040521, end: 20040529
  4. ALBUTEROL AND IPRATROPIUM INHALER [Concomitant]
  5. ASPIRIN [Concomitant]
  6. ATENOLOL [Concomitant]
  7. SINEMET [Concomitant]
  8. FELODIPINE [Concomitant]
  9. FOSINOPRIL SODIUM [Concomitant]
  10. LASIX [Concomitant]
  11. ISOSORBIDE [Concomitant]
  12. OMEPRAZOLE [Concomitant]
  13. NITROGLYCERIN SL [Concomitant]
  14. FLAGYL [Concomitant]

REACTIONS (11)
  - ANOREXIA [None]
  - ASTHENIA [None]
  - BRADYCARDIA [None]
  - CONFUSIONAL STATE [None]
  - DIZZINESS [None]
  - ELECTROCARDIOGRAM T WAVE ABNORMAL [None]
  - FATIGUE [None]
  - GAIT DISTURBANCE [None]
  - GASTROOESOPHAGEAL REFLUX DISEASE [None]
  - HELICOBACTER INFECTION [None]
  - URINE OUTPUT DECREASED [None]
